FAERS Safety Report 14360173 (Version 4)
Quarter: 2018Q3

REPORT INFORMATION
  Report Type: Spontaneous
  Country: IT (occurrence: IT)
  Receive Date: 20180106
  Receipt Date: 20180901
  Transmission Date: 20181010
  Serious: Yes (Hospitalization, Other)
  Sender: FDA-Public Use
  Company Number: IT-AUROBINDO-AUR-APL-2018-000655

PATIENT
  Age: 86 Year
  Sex: Female

DRUGS (7)
  1. RAMIPRIL TABLET [Suspect]
     Active Substance: RAMIPRIL
     Indication: HYPERTENSION
     Dosage: 2 DF, ONCE A DAY
     Route: 048
     Dates: start: 20170101, end: 20170701
  2. CONGESCOR [Suspect]
     Active Substance: BISOPROLOL
     Indication: HYPERTENSION
     Dosage: 28 TABLETS IN BLISTER
     Route: 048
     Dates: start: 20170101, end: 20170702
  3. PAROXETINE FILM?COATED TABLET [Suspect]
     Active Substance: PAROXETINE
     Indication: HYPERTENSION
     Dosage: 20 MG, ONCE A DAY
     Route: 048
     Dates: start: 20170101, end: 20170702
  4. LASIX [Suspect]
     Active Substance: FUROSEMIDE
     Indication: HYPERTENSION
     Dosage: 1 DOSAGE FORM, ONCE A DAY (30 TABLETS)
     Route: 048
     Dates: start: 20170101, end: 20170702
  5. XARELTO [Concomitant]
     Active Substance: RIVAROXABAN
     Dosage: UNK UNK,UNK ()
     Route: 065
  6. PAROXETINE FILM?COATED TABLET [Suspect]
     Active Substance: PAROXETINE
     Indication: DEPRESSION
  7. XARELTO [Concomitant]
     Active Substance: RIVAROXABAN
     Indication: PRODUCT USED FOR UNKNOWN INDICATION
     Dosage: UNK
     Route: 048

REACTIONS (4)
  - Hypertensive crisis [Unknown]
  - Headache [Unknown]
  - Vomiting [Unknown]
  - Drug ineffective [Unknown]

NARRATIVE: CASE EVENT DATE: 20170701
